FAERS Safety Report 12370989 (Version 3)
Quarter: 2016Q3

REPORT INFORMATION
  Report Type: Report from Study
  Country: US (occurrence: US)
  Receive Date: 20160516
  Receipt Date: 20160810
  Transmission Date: 20161109
  Serious: Yes (Hospitalization)
  Sender: FDA-Public Use
  Company Number: PHEH2016US011926

PATIENT
  Age: 58 Year
  Sex: Male
  Weight: 86.62 kg

DRUGS (8)
  1. RAPAFLO [Concomitant]
     Active Substance: SILODOSIN
     Indication: PRODUCT USED FOR UNKNOWN INDICATION
     Dosage: UNK, QD
     Route: 065
  2. TECFIDERA [Suspect]
     Active Substance: DIMETHYL FUMARATE
     Indication: PRODUCT USED FOR UNKNOWN INDICATION
     Dosage: 240 MG, BID
     Route: 048
     Dates: start: 201606
  3. VITAMIN D [Concomitant]
     Active Substance: CHOLECALCIFEROL
     Indication: PRODUCT USED FOR UNKNOWN INDICATION
     Dosage: 2000 IU, QD
     Route: 065
  4. GABAPENTIN. [Concomitant]
     Active Substance: GABAPENTIN
     Indication: PRODUCT USED FOR UNKNOWN INDICATION
     Dosage: 300 MG, QID
     Route: 065
  5. ALEVE [Concomitant]
     Active Substance: NAPROXEN SODIUM
     Indication: PAIN
     Dosage: 220 MG, BID
     Route: 065
  6. GILENYA [Suspect]
     Active Substance: FINGOLIMOD HYDROCHLORIDE
     Indication: MULTIPLE SCLEROSIS
     Dosage: 0.5 MG, QD
     Route: 048
     Dates: start: 20130802
  7. AMPYRA [Suspect]
     Active Substance: DALFAMPRIDINE
     Indication: MULTIPLE SCLEROSIS
     Dosage: 10 MG, BID
     Route: 048
     Dates: start: 2013
  8. CRESTOR [Concomitant]
     Active Substance: ROSUVASTATIN CALCIUM
     Indication: PRODUCT USED FOR UNKNOWN INDICATION
     Dosage: 10 MG, QOD
     Route: 065

REACTIONS (17)
  - Herpes zoster [Unknown]
  - Flushing [Recovering/Resolving]
  - Fall [Unknown]
  - Constipation [Unknown]
  - Paraesthesia [Unknown]
  - Peripheral coldness [Unknown]
  - Back pain [Unknown]
  - Body temperature abnormal [Recovering/Resolving]
  - Dyspepsia [Recovering/Resolving]
  - Dysphagia [Unknown]
  - Sensory disturbance [Unknown]
  - Fatigue [Unknown]
  - Gait disturbance [Unknown]
  - Depressed level of consciousness [Unknown]
  - Eye swelling [Unknown]
  - Rash [Unknown]
  - Balance disorder [Unknown]

NARRATIVE: CASE EVENT DATE: 201606
